FAERS Safety Report 15801446 (Version 1)
Quarter: 2019Q1

REPORT INFORMATION
  Report Type: Report from Study
  Country: US (occurrence: US)
  Receive Date: 20190109
  Receipt Date: 20190109
  Transmission Date: 20190417
  Serious: Yes (Hospitalization)
  Sender: FDA-Public Use
  Company Number: US-ROCHE-2240927

PATIENT
  Sex: Male
  Weight: 64.92 kg

DRUGS (4)
  1. ERIVEDGE [Suspect]
     Active Substance: VISMODEGIB
     Indication: BASAL CELL CARCINOMA
     Route: 048
     Dates: start: 20150409
  2. CULTURELLE [Concomitant]
     Active Substance: LACTOBACILLUS RHAMNOSUS
     Dosage: ONGOING: UNKNOWN
     Route: 048
     Dates: start: 20180108
  3. NITROFURANTOIN. [Concomitant]
     Active Substance: NITROFURANTOIN
     Dosage: ONGOING: UNKNOWN
     Route: 048
     Dates: start: 20180410
  4. MACROBID (UNITED STATES) [Concomitant]
     Route: 048
     Dates: start: 20171211, end: 20180309

REACTIONS (4)
  - Sepsis [Unknown]
  - Vomiting [Unknown]
  - Pneumonia [Unknown]
  - Aspiration [Unknown]
